FAERS Safety Report 10874264 (Version 1)
Quarter: 2015Q1

REPORT INFORMATION
  Report Type: Spontaneous
  Country: US (occurrence: US)
  Receive Date: 20150227
  Receipt Date: 20150227
  Transmission Date: 20150721
  Serious: No
  Sender: FDA-Public Use
  Company Number: US-GILEAD-2015-0139803

PATIENT
  Age: 30 Year
  Sex: Male

DRUGS (2)
  1. HARVONI [Suspect]
     Active Substance: LEDIPASVIR\SOFOSBUVIR
     Indication: HEPATITIS C
     Dosage: UNK
     Route: 065
     Dates: start: 20150216
  2. RAMIPRIL. [Concomitant]
     Active Substance: RAMIPRIL
     Indication: HYPERTENSION

REACTIONS (2)
  - Rash pruritic [Unknown]
  - Rash [Unknown]

NARRATIVE: CASE EVENT DATE: 20150222
